FAERS Safety Report 13066440 (Version 3)
Quarter: 2017Q1

REPORT INFORMATION
  Report Type: Spontaneous
  Country: SK (occurrence: SK)
  Receive Date: 20161227
  Receipt Date: 20170116
  Transmission Date: 20170428
  Serious: Yes (Death)
  Sender: FDA-Public Use
  Company Number: SK-ABBVIE-16K-260-1821616-00

PATIENT
  Age: 76 Year
  Sex: Male
  Weight: 95 kg

DRUGS (1)
  1. DUODOPA [Suspect]
     Active Substance: CARBIDOPA\LEVODOPA
     Indication: PARKINSON^S DISEASE
     Dosage: SET FOR APPROX. 12 DAYS, RD 13,0 ML, KD: 5,5 ML, ED: 1,0 ML
     Route: 050
     Dates: start: 20161208, end: 20161220

REACTIONS (6)
  - Pneumonia [Fatal]
  - Inflammatory marker increased [Unknown]
  - Mental disorder [Fatal]
  - Renal failure [Fatal]
  - General physical health deterioration [Fatal]
  - Complication of device insertion [Unknown]

NARRATIVE: CASE EVENT DATE: 201612
